FAERS Safety Report 22323070 (Version 1)
Quarter: 2023Q2

REPORT INFORMATION
  Report Type: Spontaneous
  Country: US (occurrence: None)
  Receive Date: 20230512
  Receipt Date: 20230512
  Transmission Date: 20230722
  Serious: Yes (Disabling)
  Sender: FDA-Public Use
  Company Number: None

PATIENT
  Age: 3 Year
  Sex: Female
  Weight: 15.75 kg

DRUGS (1)
  1. AMOXICILLIN [Suspect]
     Active Substance: AMOXICILLIN
     Indication: Streptococcal infection
     Dosage: OTHER QUANTITY : 5 TEASPOON(S);?FREQUENCY : EVERY 12 HOURS;?
     Route: 048
     Dates: start: 20230420, end: 20230424

REACTIONS (1)
  - Serum sickness-like reaction [None]

NARRATIVE: CASE EVENT DATE: 20230427
